FAERS Safety Report 17416781 (Version 1)
Quarter: 2020Q1

REPORT INFORMATION
  Report Type: Spontaneous
  Country: SG (occurrence: SG)
  Receive Date: 20200214
  Receipt Date: 20200214
  Transmission Date: 20200409
  Serious: Yes (Hospitalization)
  Sender: FDA-Public Use
  Company Number: SG-OXFORD PHARMACEUTICALS, LLC-2020OXF00027

PATIENT
  Age: 55 Year
  Sex: Male

DRUGS (2)
  1. AMLODIPINE [Suspect]
     Active Substance: AMLODIPINE BESYLATE
     Dosage: 5 MG, 1X/DAY
     Route: 065
     Dates: start: 201312, end: 201605
  2. AMLODIPINE [Suspect]
     Active Substance: AMLODIPINE BESYLATE
     Indication: HYPERTENSION
     Dosage: UNK
     Route: 065
     Dates: start: 201901

REACTIONS (2)
  - Granuloma [Recovered/Resolved]
  - Pseudolymphoma [Recovered/Resolved]

NARRATIVE: CASE EVENT DATE: 201901
